FAERS Safety Report 8400468-X (Version None)
Quarter: 2012Q2

REPORT INFORMATION
  Report Type: 
  Country: None (occurrence: None)
  Receive Date: 20120531
  Receipt Date: 20120525
  Transmission Date: 20120825
  Serious: Yes (Hospitalization, Other)
  Sender: FDA-Public Use
  Company Number: GB-ABBOTT-12P-167-0939080-00

PATIENT
  Age: 22 Year
  Sex: Male

DRUGS (1)
  1. HUMIRA [Suspect]
     Indication: PSORIASIS
     Dosage: FORTNIGHTLY
     Route: 058
     Dates: start: 20101115

REACTIONS (5)
  - FEELING HOT [None]
  - UPPER RESPIRATORY TRACT INFECTION [None]
  - BACK PAIN [None]
  - MALAISE [None]
  - ASTHENIA [None]
